FAERS Safety Report 10748760 (Version 2)
Quarter: 2015Q2

REPORT INFORMATION
  Report Type: Spontaneous
  Country: US (occurrence: US)
  Receive Date: 20150129
  Receipt Date: 20150619
  Transmission Date: 20150821
  Serious: Yes (Hospitalization)
  Sender: FDA-Public Use
  Company Number: US-AMGEN-USASP2015007428

PATIENT
  Age: 72 Year
  Sex: Female

DRUGS (2)
  1. ENBREL [Suspect]
     Active Substance: ETANERCEPT
     Indication: RHEUMATOID ARTHRITIS
     Dosage: 50 MG, QWK
     Route: 065
     Dates: start: 20090101, end: 2014
  2. HUMIRA [Suspect]
     Active Substance: ADALIMUMAB
     Indication: PRODUCT USED FOR UNKNOWN INDICATION
     Dosage: UNK
     Route: 065

REACTIONS (14)
  - Arthralgia [Recovered/Resolved]
  - Fall [Recovered/Resolved]
  - Pain [Unknown]
  - Mobility decreased [Not Recovered/Not Resolved]
  - Foot deformity [Unknown]
  - Asthenia [Recovered/Resolved]
  - Urinary tract infection [Recovered/Resolved]
  - No therapeutic response [Unknown]
  - Gait disturbance [Recovered/Resolved]
  - Tooth loss [Recovered/Resolved]
  - Abdominal pain upper [Recovered/Resolved]
  - Eye injury [Recovered/Resolved]
  - Limb discomfort [Unknown]
  - Chromaturia [Recovered/Resolved]

NARRATIVE: CASE EVENT DATE: 2014
